FAERS Safety Report 4421918-X (Version None)
Quarter: 2004Q3

REPORT INFORMATION
  Report Type: 
  Country: None (occurrence: None)
  Receive Date: 20040806
  Receipt Date: 20040727
  Transmission Date: 20050211
  Serious: Yes (Other)
  Sender: FDA-Public Use
  Company Number: 2004213133JP

PATIENT
  Age: 11 Year
  Sex: Female

DRUGS (4)
  1. GENOTROPIN [Suspect]
     Indication: HYPOPITUITARISM
     Dosage: 4.8 MG/6 TIMES X WEEK
     Dates: start: 20011206, end: 20030326
  2. GENOTROPIN [Suspect]
     Dosage: 5.2 MG/6 TIMES X WEEK
     Dates: start: 20030327, end: 20030730
  3. GENOTROPIN [Suspect]
     Dosage: 5.4/6 TIMES X WEEK
     Dates: start: 20030731, end: 20031022
  4. GENOTROPIN [Suspect]
     Dosage: 6.0 MG/6 TIMES X WEEK
     Dates: start: 20031023

REACTIONS (1)
  - CARTILAGE NEOPLASM [None]
